FAERS Safety Report 7137686-7 (Version None)
Quarter: 2010Q4

REPORT INFORMATION
  Report Type: 
  Country: None (occurrence: None)
  Receive Date: 20101206
  Receipt Date: 20101125
  Transmission Date: 20110411
  Serious: Yes (Death)
  Sender: FDA-Public Use
  Company Number: US-JNJFOC-20101200577

PATIENT
  Sex: Female
  Weight: 72.58 kg

DRUGS (6)
  1. REMICADE [Suspect]
     Indication: CROHN'S DISEASE
     Dosage: 10 DOSES
     Route: 042
  2. REMICADE [Suspect]
     Route: 042
  3. ANTIHISTAMINE [Concomitant]
     Indication: PREMEDICATION
  4. STEROIDS NOS [Concomitant]
     Indication: PREMEDICATION
  5. ACETAMINOPHEN [Concomitant]
     Indication: PREMEDICATION
  6. NARCOTIC ANALGESICS, NOS [Concomitant]
     Indication: CROHN'S DISEASE

REACTIONS (2)
  - ARRHYTHMIA [None]
  - MYOCARDIAL ISCHAEMIA [None]
